FAERS Safety Report 7619829 (Version 4)
Quarter: 2013Q2

REPORT INFORMATION
  Report Type: Spontaneous
  Country: US (occurrence: US)
  Receive Date: 20101007
  Receipt Date: 20130405
  Transmission Date: 20140414
  Serious: Yes (Hospitalization)
  Sender: FDA-Public Use
  Company Number: US-BAYER-201035690NA

PATIENT
  Age: 29 Year
  Sex: Female
  Weight: 93 kg

DRUGS (15)
  1. YAZ [Suspect]
     Indication: ACNE
     Dosage: UNK
     Route: 048
     Dates: start: 200908, end: 201001
  2. MAXALT [Concomitant]
  3. CITALOPRAM [Concomitant]
  4. BUTALBITAL [Concomitant]
  5. FIORICET [Concomitant]
  6. CELEXA [Concomitant]
     Dosage: 20 MG, QD
  7. MORPHINE [Concomitant]
     Dosage: 2 MG, PRN
     Route: 042
  8. PHENERGAN [Concomitant]
     Indication: NAUSEA
     Dosage: 25 MG, UNK
     Route: 042
  9. LORTAB [Concomitant]
     Dosage: 5 MG, PRN
  10. SEPTRA DS [Concomitant]
  11. ATIVAN [Concomitant]
  12. TOPOMAX [Concomitant]
  13. AMITRIPTYLINE [Concomitant]
     Indication: PAIN PROPHYLAXIS
  14. DOXYCYCLINE [Concomitant]
     Dosage: 100 MG, UNK
  15. METRONIDAZOLE [Concomitant]
     Dosage: 500 MG, UNK

REACTIONS (2)
  - Deep vein thrombosis [Recovering/Resolving]
  - Off label use [None]
